FAERS Safety Report 25387209 (Version 1)
Quarter: 2025Q2

REPORT INFORMATION
  Report Type: Spontaneous
  Country: MX (occurrence: MX)
  Receive Date: 20250602
  Receipt Date: 20250602
  Transmission Date: 20250717
  Serious: Yes (Hospitalization)
  Sender: ELI LILLY AND COMPANY
  Company Number: MX-ELI_LILLY_AND_COMPANY-MX202505018676

PATIENT
  Sex: Female

DRUGS (1)
  1. MOUNJARO [Suspect]
     Active Substance: TIRZEPATIDE
     Indication: Product used for unknown indication
     Route: 065
     Dates: start: 20250513

REACTIONS (10)
  - Gastroenteritis [Unknown]
  - Syncope [Unknown]
  - Anxiety [Unknown]
  - Hallucination [Unknown]
  - Agitation [Unknown]
  - Hypoaesthesia [Unknown]
  - Arthralgia [Unknown]
  - Arrhythmia [Unknown]
  - Discomfort [Recovering/Resolving]
  - Eructation [Unknown]

NARRATIVE: CASE EVENT DATE: 20250513
